FAERS Safety Report 11278932 (Version 2)
Quarter: 2015Q3

REPORT INFORMATION
  Report Type: Spontaneous
  Country: FR (occurrence: FR)
  Receive Date: 20150717
  Receipt Date: 20150717
  Transmission Date: 20151125
  Serious: Yes (Other)
  Sender: FDA-Public Use
  Company Number: FR-ACTAVIS-2015-14753

PATIENT
  Age: 64 Year
  Sex: Male

DRUGS (25)
  1. CARBOPLATIN (UNKNOWN) [Suspect]
     Active Substance: CARBOPLATIN
     Indication: GASTRIC CANCER
     Dosage: UNK, CYCLICAL
     Route: 065
  2. CARBOPLATIN (UNKNOWN) [Suspect]
     Active Substance: CARBOPLATIN
     Indication: SKIN TEST
     Dosage: SKIN PRICK TEST
     Route: 050
  3. CISPLATIN (UNKNOWN) [Suspect]
     Active Substance: CISPLATIN
     Indication: GASTRIC CANCER
     Dosage: UNK, CYCLICAL
     Route: 065
  4. CISPLATIN (UNKNOWN) [Suspect]
     Active Substance: CISPLATIN
     Indication: SKIN TEST
     Dosage: SKIN PRICK TEST
     Route: 050
  5. METHYLPREDNISOLONE SODIUM SUCCINATE. [Concomitant]
     Active Substance: METHYLPREDNISOLONE SODIUM SUCCINATE
     Indication: SKIN TEST
     Dosage: INTRADERMAL TEST
     Route: 023
  6. OXALIPLATIN (UNKNOWN) [Suspect]
     Active Substance: OXALIPLATIN
     Indication: SKIN TEST
     Dosage: SKIN PRICK TEST
     Route: 050
  7. DOCETAXEL (UNKNOWN) [Suspect]
     Active Substance: DOCETAXEL
     Indication: SKIN TEST
     Dosage: INTRADERMAL TEST
     Route: 023
  8. CARBOPLATIN (UNKNOWN) [Suspect]
     Active Substance: CARBOPLATIN
     Indication: SKIN TEST
     Dosage: INTRADERMAL TEST
     Route: 023
  9. CISPLATIN (UNKNOWN) [Suspect]
     Active Substance: CISPLATIN
     Indication: SKIN TEST
     Dosage: INTRADERMAL TEST
     Route: 023
  10. CALCIUM FOLINATE [Concomitant]
     Active Substance: LEUCOVORIN CALCIUM
     Indication: METASTATIC GASTRIC CANCER
     Dosage: UNK, CYCLICAL
     Route: 065
  11. CALCIUM FOLINATE [Concomitant]
     Active Substance: LEUCOVORIN CALCIUM
     Indication: SKIN TEST
     Dosage: INTRADERMAL TEST
     Route: 023
  12. ONDANSETRON [Concomitant]
     Active Substance: ONDANSETRON
     Indication: SKIN TEST
     Dosage: SKIN PRICK TEST
     Route: 050
  13. OXALIPLATIN (UNKNOWN) [Suspect]
     Active Substance: OXALIPLATIN
     Indication: METASTATIC GASTRIC CANCER
     Dosage: AS PART OF A FOLFOX REGIMEN
     Route: 065
  14. OXALIPLATIN (UNKNOWN) [Suspect]
     Active Substance: OXALIPLATIN
     Indication: SKIN TEST
     Dosage: UNK, CYCLICAL, 8 CYCLES
     Route: 065
  15. DOCETAXEL (UNKNOWN) [Suspect]
     Active Substance: DOCETAXEL
     Indication: SKIN TEST
     Dosage: SKIN PRICK TEST
     Route: 050
  16. ONDANSETRON [Concomitant]
     Active Substance: ONDANSETRON
     Indication: SKIN TEST
     Dosage: INTRADERMAL TEST
     Route: 023
  17. OXALIPLATIN (UNKNOWN) [Suspect]
     Active Substance: OXALIPLATIN
     Dosage: INTRADERMAL TEST
     Route: 023
  18. 5-FLUOROURACIL                     /00098801/ [Concomitant]
     Active Substance: FLUOROURACIL
     Indication: METASTATIC GASTRIC CANCER
     Dosage: UNK, CYCLICAL
     Route: 065
  19. CALCIUM FOLINATE [Concomitant]
     Active Substance: LEUCOVORIN CALCIUM
     Indication: SKIN TEST
     Dosage: SKIN PRICK TEST
     Route: 050
  20. ONDANSETRON [Concomitant]
     Active Substance: ONDANSETRON
     Indication: ADJUVANT THERAPY
     Dosage: UNK, CYCLICAL
     Route: 065
  21. METHYLPREDNISOLONE SODIUM SUCCINATE. [Concomitant]
     Active Substance: METHYLPREDNISOLONE SODIUM SUCCINATE
     Indication: ADJUVANT THERAPY
     Dosage: UNK, CYCLICAL
     Route: 065
  22. TAXOTERE [Concomitant]
     Active Substance: DOCETAXEL
     Indication: METASTATIC GASTRIC CANCER
     Dosage: UNK, CYCLICAL
     Route: 065
  23. 5-FLUOROURACIL                     /00098801/ [Concomitant]
     Active Substance: FLUOROURACIL
     Indication: SKIN TEST
     Dosage: INTRADERMAL TEST
     Route: 023
  24. 5-FLUOROURACIL                     /00098801/ [Concomitant]
     Active Substance: FLUOROURACIL
     Indication: SKIN TEST
     Dosage: SKIN PRICK TEST
     Route: 050
  25. METHYLPREDNISOLONE SODIUM SUCCINATE. [Concomitant]
     Active Substance: METHYLPREDNISOLONE SODIUM SUCCINATE
     Indication: SKIN TEST
     Dosage: SKIN PRICK TEST
     Route: 050

REACTIONS (2)
  - Skin reaction [Unknown]
  - Skin test positive [Unknown]
